FAERS Safety Report 21686348 (Version 5)
Quarter: 2023Q1

REPORT INFORMATION
  Report Type: Report from Study
  Country: US (occurrence: US)
  Receive Date: 20221206
  Receipt Date: 20230331
  Transmission Date: 20230418
  Serious: Yes (Other)
  Sender: FDA-Public Use
  Company Number: US-BEIGENE, LTD-BGN-2022-006386

PATIENT

DRUGS (6)
  1. BRUKINSA [Suspect]
     Active Substance: ZANUBRUTINIB
     Indication: Waldenstrom^s macroglobulinaemia
     Dosage: 320 MILLIGRAM, QD
     Route: 048
     Dates: start: 20220603
  2. BRUKINSA [Suspect]
     Active Substance: ZANUBRUTINIB
     Dosage: 160 MILLIGRAM, QD
     Route: 048
  3. BRUKINSA [Suspect]
     Active Substance: ZANUBRUTINIB
     Dosage: 160 MILLIGRAM, QD
     Route: 048
  4. BRUKINSA [Suspect]
     Active Substance: ZANUBRUTINIB
     Dosage: 160 MILLIGRAM, QD
     Route: 048
     Dates: start: 20220603
  5. BRUKINSA [Suspect]
     Active Substance: ZANUBRUTINIB
     Dosage: 160 MILLIGRAM, QD
     Route: 048
     Dates: start: 20220603
  6. BRUKINSA [Suspect]
     Active Substance: ZANUBRUTINIB
     Dosage: 160 MILLIGRAM, QD
     Route: 048
     Dates: start: 20220603

REACTIONS (35)
  - Cataract [Unknown]
  - Haemorrhage [Unknown]
  - Post procedural haemorrhage [Unknown]
  - Seasonal allergy [Unknown]
  - Blood test abnormal [Unknown]
  - Nasal congestion [Unknown]
  - Joint injury [Unknown]
  - Visual acuity reduced [Unknown]
  - Prostatomegaly [Unknown]
  - Procedural pain [Unknown]
  - Dysuria [Unknown]
  - Urinary tract disorder [Unknown]
  - Urine abnormality [Unknown]
  - Sleep disorder [Unknown]
  - Blood urine present [Recovered/Resolved]
  - Retinal disorder [Unknown]
  - Depressed mood [Unknown]
  - Anger [Unknown]
  - Gastrooesophageal reflux disease [Unknown]
  - Dyschezia [Unknown]
  - Splenomegaly [Recovering/Resolving]
  - Wound [Not Recovered/Not Resolved]
  - Loss of personal independence in daily activities [Unknown]
  - Upper respiratory tract congestion [Unknown]
  - Abdominal discomfort [Unknown]
  - Haematuria [Unknown]
  - Diarrhoea [Recovered/Resolved]
  - Contusion [Unknown]
  - Constipation [Unknown]
  - Urinary tract infection [Unknown]
  - Rash pruritic [Unknown]
  - Fatigue [Unknown]
  - Prescribed underdose [Unknown]
  - Wrong dose [Unknown]
  - Therapy interrupted [Unknown]

NARRATIVE: CASE EVENT DATE: 20220801
